FAERS Safety Report 4943335-6 (Version None)
Quarter: 2006Q1

REPORT INFORMATION
  Report Type: 
  Country: None (occurrence: None)
  Receive Date: 20060309
  Receipt Date: 20060301
  Transmission Date: 20060701
  Serious: Yes (Other)
  Sender: FDA-Public Use
  Company Number: 2006030216

PATIENT
  Sex: Male

DRUGS (1)
  1. ZYRTEC [Suspect]
     Indication: ILL-DEFINED DISORDER

REACTIONS (2)
  - CARDIAC OPERATION [None]
  - CEREBROVASCULAR ACCIDENT [None]
